FAERS Safety Report 9150106 (Version 1)
Quarter: 2013Q1

REPORT INFORMATION
  Report Type: Spontaneous
  Country: US (occurrence: None)
  Receive Date: 20130131
  Receipt Date: 20130131
  Transmission Date: 20140127
  Serious: Yes (Other)
  Sender: FDA-Public Use
  Company Number: 2013P1001070

PATIENT
  Age: 55 Year
  Sex: Male

DRUGS (2)
  1. INFUMORPH [Suspect]
  2. INFUMORPH [Suspect]

REACTIONS (2)
  - Breakthrough pain [None]
  - Medical device complication [None]
